FAERS Safety Report 4917402-7 (Version None)
Quarter: 2006Q1

REPORT INFORMATION
  Report Type: 
  Country: None (occurrence: None)
  Receive Date: 20060221
  Receipt Date: 20060216
  Transmission Date: 20060701
  Serious: Yes (Hospitalization)
  Sender: FDA-Public Use
  Company Number: IT-GLAXOSMITHKLINE-B0412837A

PATIENT
  Age: 50 Year
  Sex: Male

DRUGS (2)
  1. AUGMENTIN '125' [Suspect]
     Indication: OTITIS MEDIA ACUTE
     Dosage: 2G TWICE PER DAY
     Route: 048
     Dates: start: 20060123, end: 20060126
  2. NIMESULIDE [Suspect]
     Dosage: 200MG TWICE PER DAY
     Route: 048
     Dates: start: 20060123, end: 20060123

REACTIONS (1)
  - RHABDOMYOLYSIS [None]
